FAERS Safety Report 4790127-7 (Version None)
Quarter: 2005Q4

REPORT INFORMATION
  Report Type: 
  Country: None (occurrence: None)
  Receive Date: 20051006
  Receipt Date: 20050715
  Transmission Date: 20060501
  Serious: Yes (Life-Threatening)
  Sender: FDA-Public Use
  Company Number: JP-ROCHE-411362

PATIENT
  Age: 14 Day
  Sex: Female

DRUGS (1)
  1. ROCEPHIN [Suspect]
     Indication: CYTOMEGALOVIRUS URINARY TRACT INFECTION
     Route: 041
     Dates: start: 20050711, end: 20050714

REACTIONS (4)
  - BLOOD POTASSIUM INCREASED [None]
  - BLOOD SODIUM DECREASED [None]
  - ELECTROLYTE IMBALANCE [None]
  - RENAL FAILURE ACUTE [None]
